FAERS Safety Report 7451456-1 (Version None)
Quarter: 2011Q2

REPORT INFORMATION
  Report Type: 
  Country: None (occurrence: None)
  Receive Date: 20110502
  Receipt Date: 20110421
  Transmission Date: 20111010
  Serious: Yes (Hospitalization)
  Sender: FDA-Public Use
  Company Number: A0924985A

PATIENT
  Age: 56 Year
  Sex: Female
  Weight: 91.2 kg

DRUGS (4)
  1. PACLITAXEL [Suspect]
     Dosage: 65MGM2 CYCLIC
     Route: 042
     Dates: start: 20110203
  2. DOXORUBICIN [Suspect]
     Dosage: 60MGM2 CYCLIC
     Route: 042
     Dates: start: 20101110, end: 20110112
  3. CYCLOPHOSPHAMIDE [Suspect]
     Route: 042
     Dates: start: 20101110, end: 20110112
  4. PAZOPANIB [Suspect]
     Dosage: 400MG PER DAY
     Route: 048
     Dates: start: 20110203, end: 20110410

REACTIONS (1)
  - ANAEMIA [None]
